FAERS Safety Report 4815421-2 (Version None)
Quarter: 2005Q4

REPORT INFORMATION
  Report Type: 
  Country: None (occurrence: None)
  Receive Date: 20051027
  Receipt Date: 20051006
  Transmission Date: 20060501
  Serious: Yes (Hospitalization)
  Sender: FDA-Public Use
  Company Number: 218452

PATIENT
  Age: 70 Year
  Sex: Female

DRUGS (8)
  1. AVASTIN [Suspect]
     Indication: COLORECTAL CANCER METASTATIC
     Dosage: 575 MG,
  2. CAPECITABINE (CAPECITABINE) [Suspect]
     Indication: COLORECTAL CANCER METASTATIC
     Dosage: 4600 MG,
  3. ASPIRIN [Concomitant]
  4. ESCOMPERAZOLE (ESOMEPRAZOLE MAGNESIUM) [Concomitant]
  5. PREDNISONE [Concomitant]
  6. LOPERAMIDE (LOPERAMIDE HDYROCHLORIDE) [Concomitant]
  7. PYRIDOXINE HCL [Concomitant]
  8. UNSPECIFIED CONCOMITANT DRUGS (GENERIC COMPONENT(S) NOT KNOWN) [Concomitant]

REACTIONS (1)
  - GASTROENTERITIS [None]
